FAERS Safety Report 16375837 (Version 2)
Quarter: 2019Q3

REPORT INFORMATION
  Report Type: Report from Study
  Country: DE (occurrence: DE)
  Receive Date: 20190531
  Receipt Date: 20190731
  Transmission Date: 20191004
  Serious: Yes (Hospitalization, Other)
  Sender: FDA-Public Use
  Company Number: DE-BRISTOL-MYERS SQUIBB COMPANY-BMS-2018-010228

PATIENT
  Age: 67 Year
  Sex: Male

DRUGS (9)
  1. NIVOLUMAB [Suspect]
     Active Substance: NIVOLUMAB
     Indication: PRODUCT USED FOR UNKNOWN INDICATION
     Dosage: 306 MG, UNK
     Route: 042
     Dates: start: 20171109
  2. DALTEPARINUM NATRICUM [Concomitant]
     Indication: PRODUCT USED FOR UNKNOWN INDICATION
     Route: 065
  3. NIVOLUMAB [Suspect]
     Active Substance: NIVOLUMAB
     Indication: MALIGNANT MELANOMA
     Dosage: 300 MILLIGRAM, Q2WK
     Route: 042
     Dates: start: 20171006, end: 20171006
  4. NIVOLUMAB [Suspect]
     Active Substance: NIVOLUMAB
     Indication: PRODUCT USED FOR UNKNOWN INDICATION
     Dosage: 297 MG, UNK
     Route: 042
     Dates: start: 20171025
  5. NIVOLUMAB [Suspect]
     Active Substance: NIVOLUMAB
     Indication: PRODUCT USED FOR UNKNOWN INDICATION
     Dosage: 300 MG, UNK
     Route: 042
     Dates: start: 20171206
  6. METHOCARBAMOL. [Concomitant]
     Active Substance: METHOCARBAMOL
     Indication: PRODUCT USED FOR UNKNOWN INDICATION
     Route: 065
  7. NIVOLUMAB [Suspect]
     Active Substance: NIVOLUMAB
     Indication: PRODUCT USED FOR UNKNOWN INDICATION
     Dosage: 480 MILLIGRAM, Q4WK
     Route: 042
     Dates: start: 20171006
  8. FONDAPARINUX NATRIUM BETA [Concomitant]
     Active Substance: FONDAPARINUX SODIUM
     Indication: PRODUCT USED FOR UNKNOWN INDICATION
     Route: 065
  9. NIVOLUMAB [Suspect]
     Active Substance: NIVOLUMAB
     Indication: PRODUCT USED FOR UNKNOWN INDICATION
     Dosage: 300 MG, UNK
     Route: 042
     Dates: start: 20171122

REACTIONS (21)
  - Embolism [Recovered/Resolved]
  - Central nervous system lesion [Unknown]
  - Night sweats [Recovered/Resolved]
  - Cough [Recovered/Resolved]
  - Back pain [Recovering/Resolving]
  - Dizziness [Unknown]
  - Asthenia [Unknown]
  - Metastases to lymph nodes [Recovered/Resolved]
  - Decreased appetite [Unknown]
  - Weight decreased [Unknown]
  - Dyspnoea [Unknown]
  - Metastases to meninges [Unknown]
  - General physical health deterioration [Unknown]
  - Epistaxis [Unknown]
  - Upper respiratory tract infection [Recovered/Resolved]
  - Dehydration [Unknown]
  - Neoplasm progression [Not Recovered/Not Resolved]
  - Facial paresis [Unknown]
  - Fatigue [Unknown]
  - Epilepsy [Unknown]
  - Paraesthesia [Not Recovered/Not Resolved]

NARRATIVE: CASE EVENT DATE: 20171101
